FAERS Safety Report 9977093 (Version 1)
Quarter: 2014Q1

REPORT INFORMATION
  Report Type: Report from Study
  Country: US (occurrence: US)
  Receive Date: 20140306
  Receipt Date: 20140306
  Transmission Date: 20141002
  Serious: No
  Sender: FDA-Public Use
  Company Number: US-ABBVIE-13P-163-1167991-00

PATIENT
  Age: 31 Year
  Sex: Female

DRUGS (4)
  1. HUMIRA [Suspect]
     Indication: COLITIS ULCERATIVE
     Dates: start: 20131031, end: 20131031
  2. HUMIRA [Suspect]
  3. CLONAZEPAM [Concomitant]
     Indication: INSOMNIA
     Dosage: AS BEDTIME
  4. PERCOCET [Concomitant]
     Indication: PRODUCT USED FOR UNKNOWN INDICATION
     Dosage: 5/325, ^I USUALLY SPLIT THEM IN HALF AND TAKE ONE FULL PILL A DAY.^

REACTIONS (1)
  - Injection site bruising [Not Recovered/Not Resolved]
